FAERS Safety Report 9394920 (Version 2)
Quarter: 2013Q3

REPORT INFORMATION
  Report Type: Spontaneous
  Country: BR (occurrence: BR)
  Receive Date: 20130711
  Receipt Date: 20130726
  Transmission Date: 20140515
  Serious: Yes (Other)
  Sender: FDA-Public Use
  Company Number: BR-PFIZER INC-2013203463

PATIENT
  Age: 37 Year
  Sex: Female
  Weight: 70 kg

DRUGS (3)
  1. PRISTIQ [Suspect]
     Indication: BELL^S PHENOMENON
     Dosage: 50 MG, 1X/DAY (IN THE MORNING)
     Route: 048
     Dates: start: 20130619, end: 20130622
  2. LIPLESS [Concomitant]
     Indication: BLOOD TRIGLYCERIDES
     Dosage: 1 TABLET OF 10MG DAILY (CONTINOUS USE)
  3. FOLIC ACID [Concomitant]
     Indication: PREGNANCY
     Dosage: 1 TABLET OF 5 MG DAILY
     Dates: start: 201303

REACTIONS (36)
  - Hallucination [Unknown]
  - Depersonalisation [Unknown]
  - Dermatitis bullous [Unknown]
  - Nausea [Unknown]
  - Dry mouth [Unknown]
  - Constipation [Unknown]
  - Headache [Not Recovered/Not Resolved]
  - Dizziness [Unknown]
  - Insomnia [Unknown]
  - Tachycardia [Unknown]
  - Tinnitus [Not Recovered/Not Resolved]
  - Vertigo [Unknown]
  - Fatigue [Unknown]
  - Irritability [Unknown]
  - Abnormal dreams [Unknown]
  - Anxiety [Not Recovered/Not Resolved]
  - Dystonia [Unknown]
  - Nervousness [Unknown]
  - Decreased appetite [Unknown]
  - Paraesthesia [Unknown]
  - Rash [Unknown]
  - Off label use [Unknown]
  - Activities of daily living impaired [Unknown]
  - Nightmare [Unknown]
  - Emotional disorder [Unknown]
  - Claustrophobia [Unknown]
  - Apathy [Unknown]
  - Libido decreased [Unknown]
  - Thirst [Unknown]
  - Dyskinesia [Unknown]
  - Hypoaesthesia [Unknown]
  - Panic disorder [Unknown]
  - Crying [Unknown]
  - Feeling abnormal [Unknown]
  - Pruritus [Unknown]
  - Rash erythematous [Unknown]
